FAERS Safety Report 5104115-4 (Version None)
Quarter: 2006Q3

REPORT INFORMATION
  Report Type: 
  Country: None (occurrence: None)
  Receive Date: 20060913
  Receipt Date: 20060907
  Transmission Date: 20061208
  Serious: Yes (Life-Threatening, Hospitalization, Other)
  Sender: FDA-Public Use
  Company Number: US-MERCK-0609USA01568

PATIENT
  Age: 5 Year
  Sex: Male

DRUGS (2)
  1. AQUAMEPHYTON [Suspect]
     Indication: PROPHYLAXIS
     Route: 030
     Dates: start: 20040101, end: 20040101
  2. GENERAL ANESTHESIA (UNSPECIFIED) [Concomitant]
     Route: 065

REACTIONS (2)
  - ANAPHYLACTIC REACTION [None]
  - REVERSIBLE ISCHAEMIC NEUROLOGICAL DEFICIT [None]
